FAERS Safety Report 21290705 (Version 1)
Quarter: 2022Q3

REPORT INFORMATION
  Report Type: Spontaneous
  Country: US (occurrence: US)
  Receive Date: 20220903
  Receipt Date: 20220903
  Transmission Date: 20221027
  Serious: Yes (Other)
  Sender: FDA-Public Use
  Company Number: US-SA-SAC20220901001391

PATIENT

DRUGS (4)
  1. ZANTAC [Suspect]
     Active Substance: RANITIDINE HYDROCHLORIDE
     Dosage: UNK (OVER THE COUNTER)
     Route: 048
     Dates: start: 1985, end: 2017
  2. ZANTAC [Suspect]
     Active Substance: RANITIDINE HYDROCHLORIDE
     Dosage: UNK (PRESCRIPTION)
     Route: 048
     Dates: start: 1985, end: 2017
  3. RANITIDINE HYDROCHLORIDE [Suspect]
     Active Substance: RANITIDINE HYDROCHLORIDE
     Dosage: UNK (PRESCRIPTION)
     Route: 048
     Dates: start: 1985, end: 2017
  4. RANITIDINE HYDROCHLORIDE [Suspect]
     Active Substance: RANITIDINE HYDROCHLORIDE
     Dosage: UNK (OVER THE COUNTER )
     Route: 048
     Dates: start: 1985, end: 2017

REACTIONS (1)
  - Breast cancer [Unknown]
